FAERS Safety Report 8093252-0 (Version None)
Quarter: 2012Q1

REPORT INFORMATION
  Report Type: 
  Country: None (occurrence: None)
  Receive Date: 20120128
  Receipt Date: 20111024
  Transmission Date: 20120608
  Serious: No
  Sender: FDA-Public Use
  Company Number: US-ABBOTT-11P-163-0727099-00

PATIENT
  Age: 56 Year
  Sex: Female

DRUGS (16)
  1. NEXIUM [Concomitant]
     Indication: GASTROOESOPHAGEAL REFLUX DISEASE
  2. ADVAIR DISKUS 100/50 [Concomitant]
     Indication: CHRONIC OBSTRUCTIVE PULMONARY DISEASE
     Dosage: DISKUS 250/50
  3. HCTZ 40/124MG [Concomitant]
     Indication: BLOOD PRESSURE
     Dosage: 40/124 MG
     Dates: start: 20080101
  4. HUMIRA [Suspect]
     Dates: start: 20110927
  5. HUMIRA [Suspect]
     Indication: OSTEOARTHRITIS
  6. ALLEGRA [Concomitant]
     Indication: HYPERSENSITIVITY
  7. HUMIRA [Suspect]
     Indication: PSORIATIC ARTHROPATHY
  8. LISINOPRIL AND HYDROCHLOROTHIAZIDE [Concomitant]
     Indication: HYPERTENSION
     Dosage: 10 MG / 12.5 MG PER DOSE
  9. VIREAD [Concomitant]
     Indication: HEPATITIS B
     Route: 048
  10. NEXIUM [Concomitant]
  11. LYRICA [Concomitant]
     Indication: FIBROMYALGIA
     Route: 048
  12. VITAMIN D [Concomitant]
     Indication: VITAMIN D DECREASED
  13. CALCIUM [Concomitant]
     Indication: MINERAL SUPPLEMENTATION
  14. HUMIRA [Suspect]
     Indication: PSORIASIS
     Dosage: INTERRUPTED DUE TO FINANCES
     Dates: start: 20090101, end: 20110301
  15. FLEXERIL [Concomitant]
     Indication: PRODUCT USED FOR UNKNOWN INDICATION
     Dosage: 10 MG PRN
     Route: 048
  16. VITAMIN E [Concomitant]
     Indication: VITAMIN E DECREASED

REACTIONS (6)
  - HEPATITIS [None]
  - DRUG EFFECT DECREASED [None]
  - INJECTION SITE PAIN [None]
  - LIVER DISORDER [None]
  - PSORIASIS [None]
  - INJECTION SITE PRURITUS [None]
